FAERS Safety Report 11438424 (Version 2)
Quarter: 2015Q4

REPORT INFORMATION
  Report Type: Spontaneous
  Country: US (occurrence: None)
  Receive Date: 20150828
  Receipt Date: 20151005
  Transmission Date: 20160304
  Serious: Yes (Hospitalization)
  Sender: FDA-Public Use
  Company Number: 1713747-2015-999272

PATIENT
  Age: 42 Year
  Sex: Female
  Weight: 88 kg

DRUGS (22)
  1. CALCIUM CARBONATE. [Concomitant]
     Active Substance: CALCIUM CARBONATE
  2. MINOXIDIL. [Concomitant]
     Active Substance: MINOXIDIL
  3. LORAZEPAM. [Concomitant]
     Active Substance: LORAZEPAM
  4. LOSARTAN. [Concomitant]
     Active Substance: LOSARTAN
  5. LYRICA [Concomitant]
     Active Substance: PREGABALIN
  6. RENAGEL [Concomitant]
     Active Substance: SEVELAMER HYDROCHLORIDE
  7. LIBERTY CYCLER [Concomitant]
     Active Substance: DEVICE
  8. PROMETHAZINE [Concomitant]
     Active Substance: PROMETHAZINE\PROMETHAZINE HYDROCHLORIDE
  9. DOCUSATE SODIUM. [Concomitant]
     Active Substance: DOCUSATE SODIUM
  10. LIBERTY CYCLER SET [Concomitant]
     Active Substance: DEVICE
  11. CARVEDILOL. [Concomitant]
     Active Substance: CARVEDILOL
  12. GABAPENTIN. [Concomitant]
     Active Substance: GABAPENTIN
  13. ROCALTROL [Concomitant]
     Active Substance: CALCITRIOL
  14. POTASSIUM CHLORIDE. [Concomitant]
     Active Substance: POTASSIUM CHLORIDE
  15. REYATAZ [Concomitant]
     Active Substance: ATAZANAVIR SULFATE
  16. DELFLEX WITH DEXTROSE 1.5% LOW MAGNESIUM LOW CALCIUM [Suspect]
     Active Substance: CALCIUM CHLORIDE\DEXTROSE MONOHYDRATE\MAGNESIUM CHLORIDE\SODIUM CHLORIDE\SODIUM LACTATE
     Indication: PERITONEAL DIALYSIS
     Route: 033
  17. ABACAVIR. [Concomitant]
     Active Substance: ABACAVIR
  18. METOPROLOL TARTRATE. [Concomitant]
     Active Substance: METOPROLOL TARTRATE
  19. NEPHROCAPS [Concomitant]
     Active Substance: ASCORBIC ACID\BIOTIN\CYANOCOBALAMIN\FOLIC ACID\NIACIN\PANTOTHENIC ACID\PYRIDOXINE\RIBOFLAVIN\THIAMINE
  20. SENSIPAR [Concomitant]
     Active Substance: CINACALCET HYDROCHLORIDE
  21. ZOFRAN [Concomitant]
     Active Substance: ONDANSETRON HYDROCHLORIDE
  22. NORVIR [Concomitant]
     Active Substance: RITONAVIR

REACTIONS (2)
  - Intentional product misuse [None]
  - Muscular weakness [None]

NARRATIVE: CASE EVENT DATE: 201507
